FAERS Safety Report 5776285-6 (Version None)
Quarter: 2008Q2

REPORT INFORMATION
  Report Type: 
  Country: None (occurrence: None)
  Receive Date: 20080616
  Receipt Date: 20080606
  Transmission Date: 20081010
  Serious: Yes (Hospitalization)
  Sender: FDA-Public Use
  Company Number: CLOF-1000178

PATIENT
  Age: 60 Year
  Sex: Female
  Weight: 87.6 kg

DRUGS (3)
  1. CLOLAR [Suspect]
     Indication: ACUTE MYELOID LEUKAEMIA
     Dosage: 53 MG, QDX5, INTRAVENOUS
     Route: 042
     Dates: start: 20080319, end: 20080323
  2. BUSULFAN (BUSULFAN) [Suspect]
     Indication: ACUTE MYELOID LEUKAEMIA
     Dosage: 191 MG, QD, INTRAVENOUS; 110 MG, INTRAVENOUS
     Route: 042
     Dates: start: 20080320, end: 20080321
  3. BUSULFAN (BUSULFAN) [Suspect]
     Indication: ACUTE MYELOID LEUKAEMIA
     Dosage: 191 MG, QD, INTRAVENOUS; 110 MG, INTRAVENOUS
     Route: 042
     Dates: start: 20080322, end: 20080323

REACTIONS (16)
  - ACUTE GRAFT VERSUS HOST DISEASE IN SKIN [None]
  - ACUTE MYELOID LEUKAEMIA RECURRENT [None]
  - DEEP VEIN THROMBOSIS [None]
  - HAEMOSIDEROSIS [None]
  - HEPATOCELLULAR INJURY [None]
  - HYPERGLYCAEMIA [None]
  - HYPERMAGNESAEMIA [None]
  - LIVER INJURY [None]
  - NO THERAPEUTIC RESPONSE [None]
  - ORAL CANDIDIASIS [None]
  - PORTAL HYPERTENSION [None]
  - PREDISPOSITION TO DISEASE [None]
  - PROTHROMBIN TIME PROLONGED [None]
  - SPLENOMEGALY [None]
  - THROMBOCYTOPENIA [None]
  - VENOOCCLUSIVE DISEASE [None]
